FAERS Safety Report 7088380-2 (Version None)
Quarter: 2010Q4

REPORT INFORMATION
  Report Type: 
  Country: None (occurrence: None)
  Receive Date: 20101108
  Receipt Date: 20101022
  Transmission Date: 20110411
  Serious: Yes (Other)
  Sender: FDA-Public Use
  Company Number: US-BAXTER-2010BH027257

PATIENT
  Sex: Male

DRUGS (4)
  1. GAMMAGARD LIQUID [Suspect]
     Indication: PRIMARY IMMUNODEFICIENCY SYNDROME
     Route: 065
  2. GAMMAGARD LIQUID [Suspect]
     Indication: BLOOD IMMUNOGLOBULIN A DECREASED
     Route: 065
  3. GAMMAGARD S/D [Suspect]
     Indication: PRIMARY IMMUNODEFICIENCY SYNDROME
     Route: 065
  4. GAMMAGARD S/D [Suspect]
     Indication: BLOOD IMMUNOGLOBULIN A DECREASED
     Route: 065

REACTIONS (2)
  - ANAPHYLACTIC REACTION [None]
  - NONSPECIFIC REACTION [None]
